FAERS Safety Report 23522598 (Version 1)
Quarter: 2024Q1

REPORT INFORMATION
  Report Type: Spontaneous
  Country: US (occurrence: US)
  Receive Date: 20240214
  Receipt Date: 20240214
  Transmission Date: 20240410
  Serious: No
  Sender: FDA-Public Use
  Company Number: US-AstraZeneca-CH-00564045A

PATIENT
  Sex: Male

DRUGS (1)
  1. KANUMA [Suspect]
     Active Substance: SEBELIPASE ALFA
     Indication: Lysosomal acid lipase deficiency
     Dosage: UNK MILLIGRAM
     Route: 042

REACTIONS (4)
  - Hepatic enzyme increased [Unknown]
  - Lipids increased [Unknown]
  - Weight increased [Unknown]
  - Therapeutic response decreased [Unknown]
